FAERS Safety Report 6620910-4 (Version None)
Quarter: 2010Q1

REPORT INFORMATION
  Report Type: 
  Country: None (occurrence: None)
  Receive Date: 20100308
  Receipt Date: 20100308
  Transmission Date: 20100710
  Serious: Yes (Other)
  Sender: FDA-Public Use
  Company Number: None

PATIENT
  Age: 66 Year
  Sex: Male
  Weight: 117.9352 kg

DRUGS (2)
  1. UROXATRAL [Suspect]
     Indication: HYPERTONIC BLADDER
     Dosage: ONE DAY BUCCAL
     Route: 002
     Dates: start: 20091016
  2. UROXATRAL [Suspect]
     Indication: PROSTATIC DISORDER
     Dosage: ONE DAY BUCCAL
     Route: 002
     Dates: start: 20091016

REACTIONS (6)
  - ACNE [None]
  - HYPERSENSITIVITY [None]
  - PRURITUS [None]
  - RASH [None]
  - SKIN DISCOLOURATION [None]
  - SKIN HAEMORRHAGE [None]
